FAERS Safety Report 14917856 (Version 1)
Quarter: 2018Q2

REPORT INFORMATION
  Report Type: Spontaneous
  Country: US (occurrence: US)
  Receive Date: 20180521
  Receipt Date: 20180521
  Transmission Date: 20180711
  Serious: No
  Sender: FDA-Public Use
  Company Number: US-ZYDUS-019752

PATIENT
  Age: 57 Year
  Sex: Female

DRUGS (2)
  1. GLIBENCLAMIDE [Suspect]
     Active Substance: GLYBURIDE
     Indication: PRODUCT USED FOR UNKNOWN INDICATION
     Route: 048
     Dates: start: 20180301, end: 20180403
  2. SITAGLIPTIN + METFORMIN [Concomitant]
     Indication: PRODUCT USED FOR UNKNOWN INDICATION

REACTIONS (1)
  - Hypoglycaemia [Unknown]

NARRATIVE: CASE EVENT DATE: 201803
